FAERS Safety Report 5169869-X (Version None)
Quarter: 2006Q4

REPORT INFORMATION
  Report Type: 
  Country: None (occurrence: None)
  Receive Date: 20061212
  Receipt Date: 20060811
  Transmission Date: 20070319
  Serious: Yes (Hospitalization)
  Sender: FDA-Public Use
  Company Number: IE-ELI_LILLY_AND_COMPANY-IE200608002330

PATIENT
  Age: 36 Year
  Sex: Female

DRUGS (8)
  1. ZYPREXA [Suspect]
     Indication: PSYCHOTIC DISORDER
     Dosage: 20 MG, EACH EVENING
     Route: 048
     Dates: end: 20060705
  2. ZYPREXA [Suspect]
     Dosage: 10 MG, EACH EVENING
     Route: 048
     Dates: start: 20060818
  3. HALOPERIDOL [Concomitant]
     Dosage: UNK, UNKNOWN
     Route: 065
  4. HALOPERIDOL [Concomitant]
     Dosage: 5 MG, 2/D
     Route: 048
     Dates: end: 20060701
  5. METFORMIN HYDROCHLORIDE [Concomitant]
  6. LISINOPRIL [Concomitant]
  7. CILEST                                  /GFR/ [Concomitant]
     Indication: ORAL CONTRACEPTION
  8. PANTOPRAZOLE SODIUM [Concomitant]
     Dosage: 40 MG, DAILY (1/D)

REACTIONS (2)
  - CONGESTIVE CARDIOMYOPATHY [None]
  - DIABETES MELLITUS NON-INSULIN-DEPENDENT [None]
